FAERS Safety Report 14142584 (Version 2)
Quarter: 2018Q1

REPORT INFORMATION
  Report Type: Spontaneous
  Country: IL (occurrence: IL)
  Receive Date: 20171030
  Receipt Date: 20180314
  Transmission Date: 20180508
  Serious: Yes (Other)
  Sender: FDA-Public Use
  Company Number: IL-BAYER-2017-201890

PATIENT
  Sex: Male

DRUGS (1)
  1. XOFIGO [Suspect]
     Active Substance: RADIUM RA-223 DICHLORIDE
     Indication: PROSTATE CANCER METASTATIC
     Dosage: PATIENT RECEIVED 3 TREATMENTS
     Dates: start: 20170809, end: 20171010

REACTIONS (4)
  - Prostate cancer metastatic [None]
  - Prostate cancer metastatic [None]
  - Pain [None]
  - Prostatic specific antigen increased [None]

NARRATIVE: CASE EVENT DATE: 2017
